FAERS Safety Report 4947985-2 (Version None)
Quarter: 2006Q1

REPORT INFORMATION
  Report Type: 
  Country: None (occurrence: None)
  Receive Date: 20060320
  Receipt Date: 20060314
  Transmission Date: 20060701
  Serious: Yes (Death)
  Sender: FDA-Public Use
  Company Number: GB-BRACCO-BRO-009891

PATIENT
  Age: 46 Year
  Sex: Female

DRUGS (1)
  1. NIOPAM [Suspect]
     Route: 042

REACTIONS (15)
  - BILE DUCT NECROSIS [None]
  - BLOOD CREATININE INCREASED [None]
  - CARDIO-RESPIRATORY ARREST [None]
  - CYANOSIS [None]
  - DIFFUSE ALVEOLAR DAMAGE [None]
  - DRUG TOXICITY [None]
  - JAUNDICE [None]
  - LYMPHOPENIA [None]
  - NEPHRITIS [None]
  - NORMOCHROMIC NORMOCYTIC ANAEMIA [None]
  - OLIGURIA [None]
  - PERICARDITIS [None]
  - PERITONEAL DIALYSIS [None]
  - PULMONARY HAEMORRHAGE [None]
  - STEVENS-JOHNSON SYNDROME [None]
